FAERS Safety Report 24236439 (Version 1)
Quarter: 2024Q3

REPORT INFORMATION
  Report Type: Spontaneous
  Country: DE (occurrence: DE)
  Receive Date: 20240822
  Receipt Date: 20240822
  Transmission Date: 20241016
  Serious: Yes (Hospitalization)
  Sender: AUROBINDO
  Company Number: DE-ROCHE-3549110

PATIENT
  Age: 61 Year
  Sex: Male

DRUGS (5)
  1. CARBOPLATIN [Suspect]
     Active Substance: CARBOPLATIN
     Indication: Diffuse large B-cell lymphoma
     Dosage: 700 MILLIGRAM, CYCLICAL
     Route: 042
     Dates: start: 20240405, end: 20240405
  2. ETOPOSIDE [Suspect]
     Active Substance: ETOPOSIDE
     Indication: Diffuse large B-cell lymphoma
     Dosage: 260 MILLIGRAM, CYCLICAL
     Route: 042
     Dates: start: 20240404, end: 20240406
  3. IFOSFAMIDE [Suspect]
     Active Substance: IFOSFAMIDE
     Indication: Diffuse large B-cell lymphoma
     Dosage: 3200 MILLIGRAM, CYCLICAL
     Route: 042
     Dates: start: 20240405, end: 20240406
  4. POLATUZUMAB VEDOTIN [Suspect]
     Active Substance: POLATUZUMAB VEDOTIN
     Indication: Diffuse large B-cell lymphoma
     Dosage: 257 MILLIGRAM, CYCLICAL
     Route: 042
     Dates: start: 20240404, end: 20240404
  5. RITUXIMAB [Suspect]
     Active Substance: RITUXIMAB
     Indication: Diffuse large B-cell lymphoma
     Dosage: 1000 MILLIGRAM, CYCLICAL
     Route: 042
     Dates: start: 20240404, end: 20240404

REACTIONS (1)
  - Urinary tract infection [Recovered/Resolved]

NARRATIVE: CASE EVENT DATE: 20240413
